FAERS Safety Report 7002599-8 (Version None)
Quarter: 2010Q3

REPORT INFORMATION
  Report Type: 
  Country: None (occurrence: None)
  Receive Date: 20100920
  Receipt Date: 20100913
  Transmission Date: 20110219
  Serious: Yes (Hospitalization)
  Sender: FDA-Public Use
  Company Number: PHHY2010CA61139

PATIENT
  Sex: Female

DRUGS (1)
  1. SANDOSTATIN LAR [Suspect]
     Indication: ACROMEGALY
     Dosage: 30 MG, BIW
     Route: 030
     Dates: start: 20100211

REACTIONS (4)
  - CYTOREDUCTIVE SURGERY [None]
  - HEPATIC NEOPLASM [None]
  - POSTOPERATIVE ABSCESS [None]
  - PYREXIA [None]
